FAERS Safety Report 13697951 (Version 1)
Quarter: 2017Q2

REPORT INFORMATION
  Report Type: Spontaneous
  Country: US (occurrence: US)
  Receive Date: 20170627
  Receipt Date: 20170627
  Transmission Date: 20170830
  Serious: No
  Sender: FDA-Public Use
  Company Number: None

PATIENT
  Age: 56 Year
  Sex: Male

DRUGS (1)
  1. TACROLIMUS CAP 0.5MG [Suspect]
     Active Substance: TACROLIMUS

REACTIONS (4)
  - Malaise [None]
  - Product outer packaging issue [None]
  - Drug level decreased [None]
  - Product physical consistency issue [None]

NARRATIVE: CASE EVENT DATE: 20170418
